FAERS Safety Report 12758590 (Version 3)
Quarter: 2016Q4

REPORT INFORMATION
  Report Type: Spontaneous
  Country: US (occurrence: US)
  Receive Date: 20160919
  Receipt Date: 20161018
  Transmission Date: 20170207
  Serious: Yes (Hospitalization, Other)
  Sender: FDA-Public Use
  Company Number: US-TAKEDA-2016MPI008100

PATIENT
  Sex: Female
  Weight: 108.84 kg

DRUGS (2)
  1. REVLIMID [Suspect]
     Active Substance: LENALIDOMIDE
     Indication: PRODUCT USED FOR UNKNOWN INDICATION
     Dosage: UNK
     Route: 065
  2. NINLARO [Suspect]
     Active Substance: IXAZOMIB
     Indication: PLASMA CELL MYELOMA
     Dosage: 3 MG, UNK
     Route: 048
     Dates: start: 20160606

REACTIONS (13)
  - Viral upper respiratory tract infection [Recovering/Resolving]
  - Gastrointestinal infection [Unknown]
  - Nausea [Not Recovered/Not Resolved]
  - Dehydration [Unknown]
  - Blood magnesium decreased [Unknown]
  - Hypokalaemia [Unknown]
  - Decreased appetite [Unknown]
  - Colitis [Unknown]
  - Hip fracture [Unknown]
  - Diarrhoea [Unknown]
  - Abdominal pain [Unknown]
  - Weight decreased [Unknown]
  - White blood cell count decreased [Unknown]
